FAERS Safety Report 7071317-X (Version None)
Quarter: 2010Q4

REPORT INFORMATION
  Report Type: 
  Country: None (occurrence: None)
  Receive Date: 20101029
  Receipt Date: 20101018
  Transmission Date: 20110411
  Serious: Yes (Other)
  Sender: FDA-Public Use
  Company Number: US-JNJFOC-20101005338

PATIENT
  Sex: Female
  Weight: 74.84 kg

DRUGS (5)
  1. STELARA [Suspect]
     Indication: PSORIASIS
     Route: 058
  2. CORTICOSTEROIDS [Concomitant]
  3. CYCLOSPORINE [Concomitant]
  4. HUMIRA [Concomitant]
  5. METHOTREXATE [Concomitant]

REACTIONS (4)
  - BLINDNESS TRANSIENT [None]
  - ERYTHEMA [None]
  - PAIN OF SKIN [None]
  - PRURITUS [None]
